FAERS Safety Report 22383225 (Version 1)
Quarter: 2023Q2

REPORT INFORMATION
  Report Type: Spontaneous
  Country: NO (occurrence: NO)
  Receive Date: 20230530
  Receipt Date: 20230530
  Transmission Date: 20230722
  Serious: Yes (Other)
  Sender: FDA-Public Use
  Company Number: NO-ROCHE-3346927

PATIENT
  Sex: Male

DRUGS (19)
  1. METHOTREXATE [Suspect]
     Active Substance: METHOTREXATE
     Indication: Diffuse large B-cell lymphoma
     Dosage: UNK 3RD SYSTEMIC TREATMENT
     Route: 065
     Dates: start: 20130629, end: 20131122
  2. DOXORUBICIN [Suspect]
     Active Substance: DOXORUBICIN
     Indication: Diffuse large B-cell lymphoma
     Dosage: UNK 1ST SYSTEMIC TREATMENT
     Route: 065
     Dates: start: 20101006, end: 20110112
  3. DOXORUBICIN [Suspect]
     Active Substance: DOXORUBICIN
     Dosage: UNK 4TH SYSTEMIC TREATMENT
     Route: 065
     Dates: start: 20160118, end: 20160302
  4. IFOSFAMIDE [Suspect]
     Active Substance: IFOSFAMIDE
     Indication: Diffuse large B-cell lymphoma
     Dosage: UNK 3RD SYSTEMIC TREATMENT
     Route: 065
     Dates: start: 20130629, end: 20131122
  5. ETOPOSIDE [Suspect]
     Active Substance: ETOPOSIDE
     Indication: Diffuse large B-cell lymphoma
     Dosage: UNK 2ND SYSTEMIC TREATMENT
     Route: 065
     Dates: start: 20120419, end: 20120620
  6. ETOPOSIDE [Suspect]
     Active Substance: ETOPOSIDE
     Dosage: UNK 3RD SYSTEMIC TREATMENT
     Route: 065
     Dates: start: 20130629, end: 20131122
  7. VINCRISTINE [Suspect]
     Active Substance: VINCRISTINE
     Indication: Diffuse large B-cell lymphoma
     Dosage: UNK 1ST SYSTEMIC TREATMENT
     Route: 065
     Dates: start: 20101006, end: 20110112
  8. VINCRISTINE [Suspect]
     Active Substance: VINCRISTINE
     Dosage: UNK 4TH SYSTEMIC TREATMENT
     Route: 065
     Dates: start: 20160118, end: 20160302
  9. POLATUZUMAB VEDOTIN [Suspect]
     Active Substance: POLATUZUMAB VEDOTIN
     Indication: Diffuse large B-cell lymphoma
     Dosage: UNK 5TH LINE SYSTEMIC TREATMENT
     Route: 065
     Dates: start: 20230202, end: 20230503
  10. CYCLOPHOSPHAMIDE [Suspect]
     Active Substance: CYCLOPHOSPHAMIDE
     Indication: Diffuse large B-cell lymphoma
     Dosage: UNK 4TH SYSTEMIC TREATMENT
     Route: 065
     Dates: start: 20160118, end: 20160302
  11. CYCLOPHOSPHAMIDE [Suspect]
     Active Substance: CYCLOPHOSPHAMIDE
     Dosage: UNK 1ST SYSTEMIC TREATMENT
     Route: 065
     Dates: start: 20101006, end: 20110112
  12. PREDNISONE [Suspect]
     Active Substance: PREDNISONE
     Indication: Diffuse large B-cell lymphoma
     Dosage: UNK 4TH SYSTEMIC TREATMENT
     Route: 065
     Dates: start: 20160118, end: 20160302
  13. PREDNISONE [Suspect]
     Active Substance: PREDNISONE
     Dosage: UNK 1ST SYSTEMIC TREATMENT
     Route: 065
     Dates: start: 20101006, end: 20110112
  14. BLEOMYCIN [Suspect]
     Active Substance: BLEOMYCIN SULFATE
     Indication: Diffuse large B-cell lymphoma
     Dosage: UNK 2ND SYSTEMIC TREATMENT
     Route: 065
     Dates: start: 20120419, end: 20120620
  15. RITUXIMAB [Suspect]
     Active Substance: RITUXIMAB
     Indication: Diffuse large B-cell lymphoma
     Dosage: UUNK 1ST SYSTEMIC TREATMENT
     Route: 065
     Dates: start: 20101006, end: 20110112
  16. RITUXIMAB [Suspect]
     Active Substance: RITUXIMAB
     Dosage: UNK 2ND SYSTEMIC TREATMENT
     Route: 065
     Dates: start: 20120419, end: 20120620
  17. RITUXIMAB [Suspect]
     Active Substance: RITUXIMAB
     Dosage: UNK 4TH SYSTEMIC TREATMENT
     Route: 065
     Dates: start: 20160118, end: 20160302
  18. RITUXIMAB [Suspect]
     Active Substance: RITUXIMAB
     Dosage: UNK 3RD SYSTEMIC TREATMENT
     Route: 065
     Dates: start: 20130629, end: 20131122
  19. CYTARABINE [Suspect]
     Active Substance: CYTARABINE
     Indication: Diffuse large B-cell lymphoma
     Dosage: UNK 2ND SYSTEMIC TREATMENT
     Route: 065
     Dates: start: 20120419, end: 20120620

REACTIONS (2)
  - Blood lactate dehydrogenase increased [Unknown]
  - Disease progression [Unknown]
